FAERS Safety Report 5379682-6 (Version None)
Quarter: 2007Q3

REPORT INFORMATION
  Report Type: 
  Country: None (occurrence: None)
  Receive Date: 20070706
  Receipt Date: 20070626
  Transmission Date: 20080115
  Serious: Yes (Hospitalization)
  Sender: FDA-Public Use
  Company Number: PHNU2007DE02128

PATIENT
  Age: 63 Year
  Sex: Female

DRUGS (1)
  1. SANDOSTATIN LAR [Suspect]
     Indication: NEUROENDOCRINE TUMOUR
     Dosage: EVERY 4 WEEKS
     Dates: start: 20070305, end: 20070531

REACTIONS (4)
  - AMMONIA INCREASED [None]
  - CONFUSIONAL STATE [None]
  - NAUSEA [None]
  - TRANSAMINASES INCREASED [None]
